FAERS Safety Report 5355964-9 (Version None)
Quarter: 2007Q2

REPORT INFORMATION
  Report Type: 
  Country: None (occurrence: None)
  Receive Date: 20070613
  Receipt Date: 20070608
  Transmission Date: 20071010
  Serious: Yes (Death)
  Sender: FDA-Public Use
  Company Number: US-SANOFI-SYNTHELABO-F03200700117

PATIENT
  Age: 65 Year
  Sex: Female
  Weight: 80.7 kg

DRUGS (3)
  1. OXALIPLATIN [Suspect]
     Indication: CARCINOID TUMOUR OF THE APPENDIX
     Route: 033
     Dates: start: 20070529, end: 20070529
  2. PREMPRO [Concomitant]
     Dosage: UNK
     Route: 065
  3. LIPITOR [Concomitant]
     Dosage: UNK
     Route: 048

REACTIONS (8)
  - ACIDOSIS [None]
  - BONE MARROW FAILURE [None]
  - HAEMOGLOBIN DECREASED [None]
  - LEUKOPENIA [None]
  - LYMPHOPENIA [None]
  - NEUTROPHIL COUNT DECREASED [None]
  - PLATELET COUNT DECREASED [None]
  - STAPHYLOCOCCAL BACTERAEMIA [None]
